FAERS Safety Report 24665506 (Version 1)
Quarter: 2024Q4

REPORT INFORMATION
  Report Type: Report from Study
  Country: DE (occurrence: DE)
  Receive Date: 20241126
  Receipt Date: 20241126
  Transmission Date: 20250115
  Serious: Yes (Other)
  Sender: ABBVIE
  Company Number: DE-ABBVIE-6019447

PATIENT
  Age: 68 Year
  Sex: Male

DRUGS (2)
  1. SKYRIZI [Suspect]
     Active Substance: RISANKIZUMAB-RZAA
     Indication: Crohn^s disease
     Route: 042
     Dates: start: 20240920
  2. TILIDINE [Concomitant]
     Active Substance: TILIDINE
     Indication: Analgesic therapy
     Route: 048
     Dates: start: 2006

REACTIONS (2)
  - Cataract [Not Recovered/Not Resolved]
  - Lens disorder [Not Recovered/Not Resolved]

NARRATIVE: CASE EVENT DATE: 20240901
